FAERS Safety Report 8161204-8 (Version None)
Quarter: 2012Q1

REPORT INFORMATION
  Report Type: 
  Country: None (occurrence: None)
  Receive Date: 20120103
  Receipt Date: 20110914
  Transmission Date: 20120608
  Serious: No
  Sender: FDA-Public Use
  Company Number: AE-2011-001548

PATIENT
  Age: 46 Year
  Sex: Female

DRUGS (6)
  1. XANAX [Concomitant]
  2. TRIAMTERENE/HCTZ (DYAZIDE) [Concomitant]
  3. PEGASYS [Concomitant]
  4. METHADONE HCL [Concomitant]
  5. INCIVEK [Suspect]
     Dosage: 6 OTHER (2 OTHER, 3 IN 1 D), ORAL
     Route: 048
     Dates: start: 20110908
  6. COPEGUS [Concomitant]

REACTIONS (4)
  - PRURITUS [None]
  - RASH GENERALISED [None]
  - VULVOVAGINAL PRURITUS [None]
  - SOMNOLENCE [None]
